FAERS Safety Report 25776976 (Version 1)
Quarter: 2025Q3

REPORT INFORMATION
  Report Type: Spontaneous
  Country: US (occurrence: US)
  Receive Date: 20250909
  Receipt Date: 20250909
  Transmission Date: 20251021
  Serious: No
  Sender: DOMPE FARMACEUTICI
  Company Number: US-FARMAPROD-202409-3310

PATIENT
  Age: 82 Year
  Sex: Female
  Weight: 55.29 kg

DRUGS (7)
  1. OXERVATE [Suspect]
     Active Substance: CENEGERMIN-BKBJ
     Indication: Neurotrophic keratopathy
     Route: 047
     Dates: start: 20240827
  2. OXYBUTYNIN CHLORIDE [Concomitant]
     Active Substance: OXYBUTYNIN CHLORIDE
  3. DEXLANSOPRAZOLE [Concomitant]
     Active Substance: DEXLANSOPRAZOLE
  4. AMLODIPINE BESYLATE [Concomitant]
     Active Substance: AMLODIPINE BESYLATE
  5. IRBESARTAN [Concomitant]
     Active Substance: IRBESARTAN
  6. CARVEDILOL [Concomitant]
     Active Substance: CARVEDILOL
  7. FAMOTIDINE [Concomitant]
     Active Substance: FAMOTIDINE

REACTIONS (4)
  - Product dose omission issue [Unknown]
  - Lacrimation increased [Not Recovered/Not Resolved]
  - Conjunctivitis [Unknown]
  - Periorbital pain [Unknown]

NARRATIVE: CASE EVENT DATE: 20240922
